FAERS Safety Report 7426930-4 (Version None)
Quarter: 2011Q2

REPORT INFORMATION
  Report Type: 
  Country: None (occurrence: None)
  Receive Date: 20110420
  Receipt Date: 20110413
  Transmission Date: 20111010
  Serious: Yes (Death, Hospitalization, Other)
  Sender: FDA-Public Use
  Company Number: JP-PFIZER INC-JP-WYE-H14567810

PATIENT
  Age: 57 Year
  Sex: Female
  Weight: 50 kg

DRUGS (18)
  1. RHEUMATREX [Suspect]
     Indication: RHEUMATOID ARTHRITIS
     Dosage: 2 MG, 3X/WK
     Route: 048
     Dates: start: 20050601, end: 20100327
  2. AZULFIDINE [Suspect]
     Indication: RHEUMATOID ARTHRITIS
     Dosage: 1000 MG, 1X/DAY
     Route: 048
     Dates: start: 20041001, end: 20100327
  3. RIMATIL [Suspect]
     Dosage: 100 MG, 3X/DAY
     Route: 048
     Dates: start: 20090301, end: 20100327
  4. ADALAT - SLOW RELEASE [Concomitant]
     Dosage: 40 MG, 1X/DAY
     Route: 048
     Dates: start: 20070601, end: 20100327
  5. REMICADE [Suspect]
     Indication: RHEUMATOID ARTHRITIS
     Dosage: 200 MG/DAY ON 26JAN2010, 09FEB2010, 09MAR2010
     Route: 042
     Dates: start: 20100126, end: 20100327
  6. BREDININ [Suspect]
     Dosage: 50 MG, WEEKLY
     Route: 048
     Dates: start: 20070401, end: 20100327
  7. PREDNISOLONE [Suspect]
     Dosage: 5 MG, 2X/DAY
     Route: 048
     Dates: start: 20041001, end: 20100327
  8. PREDONINE [Concomitant]
     Route: 048
  9. REMICADE [Suspect]
     Dosage: 200 MG, 1X/DAY
     Route: 042
     Dates: start: 20100309, end: 20100309
  10. BLOPRESS [Concomitant]
     Dosage: 8 MG, 1X/DAY
     Route: 048
     Dates: start: 20071201, end: 20100327
  11. CELECTOL [Concomitant]
     Dosage: 100 MG, 1X/DAY
     Route: 048
     Dates: start: 20081201, end: 20100327
  12. TAKEPRON [Concomitant]
     Dosage: 15 MG, 1X/DAY
     Route: 048
  13. REMICADE [Suspect]
     Dosage: 200 MG, 1X/DAY
     Route: 042
     Dates: start: 20100209, end: 20100209
  14. FOSAMAX [Concomitant]
     Dosage: 35 MG, WEEKLY
     Route: 048
     Dates: start: 20051201, end: 20100327
  15. LOXONIN [Concomitant]
     Dosage: UNK
     Route: 048
     Dates: start: 20041001, end: 20100327
  16. MUCOSTA [Concomitant]
     Dosage: UNK
     Route: 048
     Dates: start: 20041001, end: 20100327
  17. LASIX [Concomitant]
     Dosage: 20 MG, 1X/DAY
     Route: 048
     Dates: start: 20081201, end: 20100327
  18. ISONIAZID [Concomitant]
     Dosage: 200 MG, 1X/DAY
     Route: 048
     Dates: start: 20091101, end: 20100327

REACTIONS (8)
  - HEPATIC ENZYME INCREASED [None]
  - SEPSIS [None]
  - MULTI-ORGAN FAILURE [None]
  - DISSEMINATED INTRAVASCULAR COAGULATION [None]
  - EPSTEIN-BARR VIRUS INFECTION [None]
  - BLOOD LACTATE DEHYDROGENASE INCREASED [None]
  - LYMPHOPROLIFERATIVE DISORDER [None]
  - DIFFUSE LARGE B-CELL LYMPHOMA [None]
